FAERS Safety Report 20010527 (Version 2)
Quarter: 2021Q4

REPORT INFORMATION
  Report Type: Report from Study
  Country: IN (occurrence: IN)
  Receive Date: 20211029
  Receipt Date: 20211111
  Transmission Date: 20220304
  Serious: Yes (Death, Other)
  Sender: FDA-Public Use
  Company Number: IN-BRISTOL-MYERS SQUIBB COMPANY-BMS-2021-112647

PATIENT
  Age: 38 Year
  Sex: Male
  Weight: 66 kg

DRUGS (1)
  1. NIVOLUMAB [Suspect]
     Active Substance: NIVOLUMAB
     Indication: Squamous cell carcinoma of head and neck
     Dosage: 198 MILLIGRAM, Q2WK
     Route: 042
     Dates: start: 20210722, end: 20210815

REACTIONS (3)
  - Malignant neoplasm progression [Fatal]
  - Cardiac arrest [Fatal]
  - Dyspnoea [Unknown]
